FAERS Safety Report 5343675-5 (Version None)
Quarter: 2007Q2

REPORT INFORMATION
  Report Type: 
  Country: None (occurrence: None)
  Receive Date: 20070531
  Receipt Date: 20070531
  Transmission Date: 20071010
  Serious: Yes (Life-Threatening, Other)
  Sender: FDA-Public Use
  Company Number: None

PATIENT
  Sex: Male
  Weight: 72.5755 kg

DRUGS (1)
  1. OXYCONTIN [Suspect]
     Indication: BACK DISORDER
     Dosage: 120 TABLETS 4 TIMES 86 TABLETS 3 TIMES

REACTIONS (2)
  - ILL-DEFINED DISORDER [None]
  - SKIN DISCOLOURATION [None]
